FAERS Safety Report 7209732-3 (Version None)
Quarter: 2011Q1

REPORT INFORMATION
  Report Type: 
  Country: None (occurrence: None)
  Receive Date: 20110104
  Receipt Date: 20101223
  Transmission Date: 20110831
  Serious: Yes (Hospitalization)
  Sender: FDA-Public Use
  Company Number: JP-GILEAD-2010-0034611

PATIENT
  Age: 56 Year
  Sex: Male

DRUGS (16)
  1. GRAN [Concomitant]
     Dates: start: 20090713, end: 20090713
  2. GLOVENIN-I [Concomitant]
     Dates: start: 20091008, end: 20091012
  3. MEPRON [Concomitant]
     Dates: start: 20090702, end: 20090916
  4. ALLEGRA [Concomitant]
     Dates: start: 20091130, end: 20091227
  5. TRUVADA [Suspect]
     Indication: HIV INFECTION
     Route: 048
     Dates: start: 20090819
  6. PEGASYS [Concomitant]
     Dates: start: 20091014, end: 20091014
  7. ZITHROMAX [Suspect]
     Indication: OPPORTUNISTIC INFECTION PROPHYLAXIS
     Route: 048
     Dates: start: 20090714, end: 20090916
  8. BENAMBAX [Concomitant]
     Dates: start: 20090702
  9. PEGASYS [Concomitant]
     Dates: start: 20091216, end: 20091216
  10. KALETRA [Suspect]
     Indication: HIV INFECTION
     Route: 048
     Dates: start: 20090819
  11. PREDONINE [Concomitant]
     Dates: start: 20091130, end: 20091209
  12. PEGASYS [Concomitant]
     Dates: start: 20100324, end: 20100324
  13. LANSAP [Concomitant]
     Dates: start: 20091118, end: 20091125
  14. DERMOVATE [Concomitant]
     Dates: start: 20091130, end: 20091227
  15. GRAN [Concomitant]
     Dates: start: 20091221, end: 20091221
  16. PEGASYS [Concomitant]
     Dates: start: 20091001, end: 20091001

REACTIONS (2)
  - IDIOPATHIC THROMBOCYTOPENIC PURPURA [None]
  - IMMUNE RECONSTITUTION SYNDROME [None]
